FAERS Safety Report 4705055-2 (Version None)
Quarter: 2005Q2

REPORT INFORMATION
  Report Type: 
  Country: None (occurrence: None)
  Receive Date: 20050630
  Receipt Date: 20050630
  Transmission Date: 20051028
  Serious: Yes (Life-Threatening)
  Sender: FDA-Public Use
  Company Number: None

PATIENT
  Age: 68 Year
  Sex: Male
  Weight: 119 kg

DRUGS (2)
  1. CETUXIMAB  100MG / 50-ML  BRISTOL MYERS SQUIBB [Suspect]
     Indication: OESOPHAGEAL CARCINOMA
     Dosage: 400MG/M2   DAY 1   INTRAVENOUS
     Route: 042
     Dates: start: 20050628, end: 20050628
  2. CETUXIMAB [Suspect]

REACTIONS (13)
  - ANAPHYLACTIC REACTION [None]
  - BRADYCARDIA [None]
  - COLD SWEAT [None]
  - DEPRESSED LEVEL OF CONSCIOUSNESS [None]
  - ERYTHEMA [None]
  - FAECAL INCONTINENCE [None]
  - HYPOTENSION [None]
  - HYPOXIA [None]
  - INFUSION RELATED REACTION [None]
  - OXYGEN SATURATION DECREASED [None]
  - PRURITUS [None]
  - SOMNOLENCE [None]
  - URINARY INCONTINENCE [None]
